FAERS Safety Report 5027895-5 (Version None)
Quarter: 2006Q2

REPORT INFORMATION
  Report Type: 
  Country: None (occurrence: None)
  Receive Date: 20060616
  Receipt Date: 20060315
  Transmission Date: 20061013
  Serious: Yes (Death, Other)
  Sender: FDA-Public Use
  Company Number: US-MERCK-0603USA03110

PATIENT
  Age: 80 Year
  Sex: Male

DRUGS (1)
  1. MEFOXIN [Suspect]
     Indication: PROPHYLAXIS
     Route: 042

REACTIONS (16)
  - ACIDOSIS [None]
  - CLOSTRIDIUM DIFFICILE COLITIS [None]
  - DEEP VEIN THROMBOSIS [None]
  - GASTROINTESTINAL NECROSIS [None]
  - HYPOTENSION [None]
  - HYPOXIA [None]
  - ILEAL PERFORATION [None]
  - ILEITIS [None]
  - MULTI-ORGAN FAILURE [None]
  - PERITONITIS [None]
  - PNEUMONIA [None]
  - RENAL FAILURE [None]
  - RESPIRATORY FAILURE [None]
  - SEPSIS [None]
  - SMALL INTESTINAL PERFORATION [None]
  - URINARY TRACT INFECTION [None]
